FAERS Safety Report 24361028 (Version 1)
Quarter: 2024Q3

REPORT INFORMATION
  Report Type: Report from Study
  Country: US (occurrence: US)
  Receive Date: 20240925
  Receipt Date: 20240925
  Transmission Date: 20241017
  Serious: Yes (Other)
  Sender: PAREXEL
  Company Number: US-Stemline Therapeutics, Inc.-2024ST004144

PATIENT

DRUGS (2)
  1. ORSERDU [Suspect]
     Active Substance: ELACESTRANT
     Indication: Neoplasm malignant
     Dosage: 345 MG, DAILY
     Route: 048
     Dates: start: 20240612
  2. AMOXICILLIN [Concomitant]
     Active Substance: AMOXICILLIN
     Indication: Dental operation
     Dosage: UNK
     Dates: start: 202408

REACTIONS (15)
  - Thrombosis [Unknown]
  - Gastroenteritis viral [Unknown]
  - Illness [Unknown]
  - Urinary incontinence [Unknown]
  - Anal incontinence [Unknown]
  - Blood cholesterol increased [Unknown]
  - Gastrooesophageal reflux disease [Unknown]
  - Blood creatine increased [Unknown]
  - Poor quality sleep [Unknown]
  - Pain in extremity [Unknown]
  - Decreased appetite [Unknown]
  - Diarrhoea [Unknown]
  - Abdominal pain upper [Unknown]
  - Asthenia [Unknown]
  - Fatigue [Unknown]
